FAERS Safety Report 13930467 (Version 1)
Quarter: 2017Q3

REPORT INFORMATION
  Report Type: Spontaneous
  Country: US (occurrence: US)
  Receive Date: 20170901
  Receipt Date: 20170901
  Transmission Date: 20171127
  Serious: No
  Sender: FDA-Public Use
  Company Number: US-PFIZER INC-2017378253

PATIENT

DRUGS (2)
  1. UNASYN [Suspect]
     Active Substance: AMPICILLIN SODIUM\SULBACTAM SODIUM
     Dosage: UNK
  2. ATIVAN [Suspect]
     Active Substance: LORAZEPAM
     Dosage: UNK

REACTIONS (2)
  - Drug hypersensitivity [Unknown]
  - Pruritus [Unknown]
